FAERS Safety Report 19246719 (Version 1)
Quarter: 2021Q2

REPORT INFORMATION
  Report Type: Spontaneous
  Country: US (occurrence: US)
  Receive Date: 20210512
  Receipt Date: 20210512
  Transmission Date: 20210717
  Serious: Yes (Other)
  Sender: FDA-Public Use
  Company Number: US-BAYER-2021-137887

PATIENT
  Age: 55 Year
  Sex: Male

DRUGS (6)
  1. NITROGLYCERIN. [Concomitant]
     Active Substance: NITROGLYCERIN
     Route: 042
  2. NITROGLYCERIN. [Concomitant]
     Active Substance: NITROGLYCERIN
     Route: 042
  3. TICAGRELOR. [Suspect]
     Active Substance: TICAGRELOR
  4. NITROGLYCERIN. [Concomitant]
     Active Substance: NITROGLYCERIN
  5. HEPARIN [Suspect]
     Active Substance: HEPARIN SODIUM
  6. ACETYLSALICYLIC ACID [Suspect]
     Active Substance: ASPIRIN

REACTIONS (2)
  - Labelled drug-drug interaction medication error [None]
  - Haemoptysis [Recovering/Resolving]
